FAERS Safety Report 4597524-3 (Version None)
Quarter: 2005Q1

REPORT INFORMATION
  Report Type: 
  Country: None (occurrence: None)
  Receive Date: 20050228
  Receipt Date: 20050228
  Transmission Date: 20050727
  Serious: No
  Sender: FDA-Public Use
  Company Number: None

PATIENT
  Age: 80 Year
  Sex: Male
  Weight: 81 kg

DRUGS (2)
  1. RISPERDAL [Suspect]
     Indication: AFFECTIVE DISORDER
     Dosage: 1 MG QAM 1.5 MG QHS PO
     Route: 048
     Dates: start: 20041216, end: 20050105
  2. RISPERDAL [Suspect]
     Indication: DEMENTIA
     Dosage: 1 MG QAM 1.5 MG QHS PO
     Route: 048
     Dates: start: 20041216, end: 20050105

REACTIONS (1)
  - LETHARGY [None]
